FAERS Safety Report 17432449 (Version 1)
Quarter: 2020Q1

REPORT INFORMATION
  Report Type: Report from Study
  Country: US (occurrence: US)
  Receive Date: 20200218
  Receipt Date: 20200218
  Transmission Date: 20200409
  Serious: No
  Sender: FDA-Public Use
  Company Number: NVSC2020US043256

PATIENT
  Age: 41 Year
  Sex: Male

DRUGS (1)
  1. COSENTYX [Suspect]
     Active Substance: SECUKINUMAB
     Indication: AXIAL SPONDYLOARTHRITIS
     Route: 065
     Dates: start: 201610

REACTIONS (6)
  - Pain [Recovering/Resolving]
  - Ocular hyperaemia [Recovered/Resolved]
  - Waxy flexibility [Recovering/Resolving]
  - Therapeutic response unexpected [Recovering/Resolving]
  - Product dose omission [Recovered/Resolved]
  - Muscle tightness [Recovering/Resolving]

NARRATIVE: CASE EVENT DATE: 201610
